FAERS Safety Report 10727803 (Version 2)
Quarter: 2015Q1

REPORT INFORMATION
  Report Type: Report from Study
  Country: JP (occurrence: JP)
  Receive Date: 20150121
  Receipt Date: 20150128
  Transmission Date: 20150721
  Serious: Yes (Death, Hospitalization, Other)
  Sender: FDA-Public Use
  Company Number: JP-GLAXOSMITHKLINE-JP2015GSK007139

PATIENT
  Age: 63 Year
  Sex: Male
  Weight: 76.4 kg

DRUGS (16)
  1. ETOPOSIDE. [Concomitant]
     Active Substance: ETOPOSIDE
     Dosage: UNK
     Dates: start: 20140209, end: 20140209
  2. WHOLE BRAIN RADIOTHERAPY [Concomitant]
     Dosage: UNK
     Dates: start: 20141209, end: 20141224
  3. OFATUMUMAB [Suspect]
     Active Substance: OFATUMUMAB
     Indication: DIFFUSE LARGE B-CELL LYMPHOMA REFRACTORY
  4. CISPLATIN. [Suspect]
     Active Substance: CISPLATIN
     Indication: DIFFUSE LARGE B-CELL LYMPHOMA RECURRENT
     Dosage: 100 MG/M2, CYC
     Route: 042
     Dates: start: 20131127, end: 20140108
  5. FEBURIC [Concomitant]
     Active Substance: FEBUXOSTAT
     Indication: HYPERURICAEMIA
     Dosage: 10 MG, QD
     Route: 048
     Dates: start: 20140127
  6. NEXIUM [Concomitant]
     Active Substance: ESOMEPRAZOLE MAGNESIUM
     Indication: PROPHYLAXIS
     Dosage: 10 MG, QD
     Route: 048
     Dates: start: 20131127
  7. DEXAMETHASONE. [Suspect]
     Active Substance: DEXAMETHASONE
     Indication: DIFFUSE LARGE B-CELL LYMPHOMA RECURRENT
     Dosage: 40 MG, CYC
     Route: 042
     Dates: start: 20131127, end: 20140111
  8. DEXAMETHASONE. [Suspect]
     Active Substance: DEXAMETHASONE
     Indication: DIFFUSE LARGE B-CELL LYMPHOMA REFRACTORY
  9. DEXAMETHASONE. [Concomitant]
     Active Substance: DEXAMETHASONE
  10. FLUID REPLACEMENT (NOS) [Concomitant]
     Dosage: UNK
     Dates: start: 20150107
  11. CISPLATIN. [Suspect]
     Active Substance: CISPLATIN
     Indication: DIFFUSE LARGE B-CELL LYMPHOMA REFRACTORY
  12. CYTARABINE. [Suspect]
     Active Substance: CYTARABINE
     Indication: DIFFUSE LARGE B-CELL LYMPHOMA RECURRENT
     Dosage: UNK
     Dates: start: 20131128, end: 20140110
  13. CYTARABINE. [Suspect]
     Active Substance: CYTARABINE
     Indication: DIFFUSE LARGE B-CELL LYMPHOMA REFRACTORY
  14. OFATUMUMAB [Suspect]
     Active Substance: OFATUMUMAB
     Indication: DIFFUSE LARGE B-CELL LYMPHOMA RECURRENT
     Dosage: UNK, CYC
     Route: 042
     Dates: start: 20131126, end: 20140107
  15. MELPHALAN [Concomitant]
     Active Substance: MELPHALAN
     Dosage: UNK
     Dates: start: 20140209, end: 20140209
  16. CYCLOPHOSPHAMIDE. [Concomitant]
     Active Substance: CYCLOPHOSPHAMIDE
     Dosage: UNK
     Dates: start: 20140209, end: 20140209

REACTIONS (1)
  - Myocarditis [Fatal]

NARRATIVE: CASE EVENT DATE: 20150108
